FAERS Safety Report 16735526 (Version 11)
Quarter: 2020Q1

REPORT INFORMATION
  Report Type: Spontaneous
  Country: BR (occurrence: BR)
  Receive Date: 20190823
  Receipt Date: 20200312
  Transmission Date: 20200409
  Serious: Yes (Other)
  Sender: FDA-Public Use
  Company Number: BR-IPSEN BIOPHARMACEUTICALS, INC.-2019-10921

PATIENT
  Age: 56 Year
  Sex: Female

DRUGS (4)
  1. SOMATULINE AUTOGEL [Suspect]
     Active Substance: LANREOTIDE ACETATE
     Route: 058
     Dates: start: 2019
  2. SOMATULINE AUTOGEL [Suspect]
     Active Substance: LANREOTIDE ACETATE
     Indication: PITUITARY TUMOUR
     Route: 058
     Dates: start: 2016, end: 2016
  3. SOMATULINE AUTOGEL [Suspect]
     Active Substance: LANREOTIDE ACETATE
     Indication: OFF LABEL USE
     Route: 058
     Dates: start: 2019, end: 2019
  4. PREDNISONE. [Concomitant]
     Active Substance: PREDNISONE
     Dosage: HALF TABLET A DAY
     Route: 048

REACTIONS (19)
  - Nausea [Recovering/Resolving]
  - Somnolence [Not Recovered/Not Resolved]
  - Insulin-like growth factor abnormal [Not Recovered/Not Resolved]
  - Off label use [Unknown]
  - Dizziness [Recovered/Resolved]
  - Cold sweat [Recovering/Resolving]
  - Dysphonia [Unknown]
  - Anxiety [Recovered/Resolved]
  - Product dose omission [Unknown]
  - Asthenia [Recovered/Resolved]
  - Dyspepsia [Recovering/Resolving]
  - Dizziness [Recovering/Resolving]
  - Amnesia [Recovering/Resolving]
  - Product availability issue [Unknown]
  - Headache [Recovering/Resolving]
  - Pain in extremity [Recovering/Resolving]
  - Asthenia [Recovering/Resolving]
  - Syncope [Recovered/Resolved]
  - Blood pressure fluctuation [Recovered/Resolved]

NARRATIVE: CASE EVENT DATE: 2016
